FAERS Safety Report 5685292-3 (Version None)
Quarter: 2008Q1

REPORT INFORMATION
  Report Type: 
  Country: None (occurrence: None)
  Receive Date: 20080328
  Receipt Date: 20080319
  Transmission Date: 20080703
  Serious: Yes (Other)
  Sender: FDA-Public Use
  Company Number: NL-PFIZER INC-2008015881

PATIENT
  Sex: Female

DRUGS (1)
  1. CELEBREX [Suspect]
     Indication: ARTHRITIS
     Route: 048
     Dates: start: 20080125, end: 20080128

REACTIONS (6)
  - ANXIETY [None]
  - CONVULSION [None]
  - HEAD DISCOMFORT [None]
  - HYPERVENTILATION [None]
  - PALLOR [None]
  - STOMATITIS [None]
